FAERS Safety Report 20662596 (Version 1)
Quarter: 2022Q2

REPORT INFORMATION
  Report Type: Spontaneous
  Country: US (occurrence: US)
  Receive Date: 20220401
  Receipt Date: 20220401
  Transmission Date: 20220721
  Serious: Yes (Other)
  Sender: FDA-Public Use
  Company Number: US-CELLTRION INC.-2022US003788

PATIENT

DRUGS (4)
  1. TRUXIMA [Suspect]
     Active Substance: RITUXIMAB-ABBS
     Indication: Breast cancer
     Dosage: 542MG C1 D1 Q21D
     Dates: start: 20211015
  2. TRUXIMA [Suspect]
     Active Substance: RITUXIMAB-ABBS
     Dosage: 542MG C1 D1 Q21D
     Dates: start: 20211105
  3. TRUXIMA [Suspect]
     Active Substance: RITUXIMAB-ABBS
     Dosage: 542MG C1 D1 Q21D
     Dates: start: 20220301
  4. TRUXIMA [Suspect]
     Active Substance: RITUXIMAB-ABBS
     Dosage: 542MG C1 D1 Q21D
     Dates: start: 20220322

REACTIONS (2)
  - Breast cancer [Unknown]
  - Off label use [Unknown]
